FAERS Safety Report 4977656-8 (Version None)
Quarter: 2006Q2

REPORT INFORMATION
  Report Type: 
  Country: None (occurrence: None)
  Receive Date: 20060420
  Receipt Date: 20060210
  Transmission Date: 20061013
  Serious: No
  Sender: FDA-Public Use
  Company Number: 06-0016TG

PATIENT
  Age: 49 Year
  Sex: Male

DRUGS (5)
  1. LITHIUM CARBONATE [Suspect]
     Indication: DRUG USE FOR UNKNOWN INDICATION
     Dosage: 900MG AT NIGHT
     Route: 048
     Dates: start: 19970101
  2. FENOFIBRATE [Suspect]
     Dosage: 160MG THREE TIMES PER WEEK
     Route: 048
     Dates: start: 20051201, end: 20060201
  3. KLONOPIN [Suspect]
     Dosage: 2MG AT NIGHT
     Route: 048
     Dates: start: 19970101
  4. LUVOX [Suspect]
     Dosage: 100MG AT NIGHT
     Route: 048
     Dates: start: 19970101
  5. DESYREL [Suspect]
     Dosage: 100MG AT NIGHT
     Route: 048
     Dates: start: 19970101

REACTIONS (3)
  - DEPRESSION [None]
  - FATIGUE [None]
  - NERVOUSNESS [None]
